FAERS Safety Report 8912304 (Version 5)
Quarter: 2013Q2

REPORT INFORMATION
  Report Type: Spontaneous
  Country: US (occurrence: US)
  Receive Date: 20121116
  Receipt Date: 20130531
  Transmission Date: 20140414
  Serious: Yes (Hospitalization, Disabling, Other)
  Sender: FDA-Public Use
  Company Number: US-009507513-1202USA01124

PATIENT
  Sex: Female

DRUGS (4)
  1. FOSAMAX [Suspect]
     Indication: OSTEOPOROSIS
     Dosage: 10 MG, QD
     Route: 048
     Dates: start: 199510, end: 200101
  2. ACTONEL [Suspect]
     Dosage: 5 MG QD
     Route: 048
     Dates: start: 20000629
  3. SYNTHROID [Concomitant]
     Indication: HYPOTHYROIDISM
     Dosage: UNK
     Route: 048
     Dates: start: 1976
  4. HORMONES (UNSPECIFIED) [Concomitant]
     Dosage: UNK
     Dates: start: 1992

REACTIONS (50)
  - Intramedullary rod insertion [Unknown]
  - Femur fracture [Unknown]
  - Femur fracture [Unknown]
  - Femur fracture [Unknown]
  - Intramedullary rod insertion [Unknown]
  - Femur fracture [Unknown]
  - Intramedullary rod insertion [Unknown]
  - Intramedullary rod insertion [Unknown]
  - Intramedullary rod insertion [Unknown]
  - Arthrodesis [Unknown]
  - Hip fracture [Unknown]
  - Bone graft [Unknown]
  - Osteotomy [Unknown]
  - Hip arthroplasty [Unknown]
  - Medical device removal [Unknown]
  - Toe operation [Unknown]
  - Foot deformity [Unknown]
  - Foot deformity [Unknown]
  - Fracture malunion [Unknown]
  - Fall [Unknown]
  - Osteoarthritis [Unknown]
  - Femur fracture [Unknown]
  - Device failure [Unknown]
  - Foot fracture [Unknown]
  - Depression [Unknown]
  - Adverse event [Unknown]
  - Hypertension [Unknown]
  - Spinal column stenosis [Unknown]
  - Tooth disorder [Unknown]
  - Blood cholesterol increased [Unknown]
  - Vitamin D deficiency [Unknown]
  - Cervical dysplasia [Not Recovered/Not Resolved]
  - Weight increased [Unknown]
  - Conjunctivitis viral [Unknown]
  - Osteoarthritis [Unknown]
  - Asthma [Unknown]
  - Impaired healing [Unknown]
  - Hiatus hernia [Unknown]
  - Macrocytosis [Unknown]
  - Endometrial ablation [Unknown]
  - Oral surgery [Unknown]
  - Depression [Unknown]
  - Urine calcium increased [Unknown]
  - Osteomalacia [Unknown]
  - Low turnover osteopathy [Unknown]
  - Menopausal symptoms [Unknown]
  - Impaired healing [Unknown]
  - Fracture nonunion [Unknown]
  - Frequent bowel movements [Unknown]
  - Gastrooesophageal reflux disease [Unknown]
